FAERS Safety Report 20173850 (Version 1)
Quarter: 2021Q4

REPORT INFORMATION
  Report Type: Spontaneous
  Country: US (occurrence: US)
  Receive Date: 20211213
  Receipt Date: 20211213
  Transmission Date: 20220303
  Serious: Yes (Hospitalization, Other)
  Sender: FDA-Public Use
  Company Number: US-BRISTOL-MYERS SQUIBB COMPANY-BMS-2021-130724

PATIENT
  Age: 36 Year
  Sex: Male

DRUGS (1)
  1. DASATINIB [Suspect]
     Active Substance: DASATINIB
     Indication: Chronic eosinophilic leukaemia
     Dosage: 140 MG DAILY
     Route: 065

REACTIONS (3)
  - Pleural effusion [Unknown]
  - Cardiac tamponade [Unknown]
  - Intentional product use issue [Unknown]
